FAERS Safety Report 16193566 (Version 2)
Quarter: 2019Q2

REPORT INFORMATION
  Report Type: Spontaneous
  Country: GB (occurrence: GB)
  Receive Date: 20190413
  Receipt Date: 20190413
  Transmission Date: 20190711
  Serious: Yes (Other)
  Sender: FDA-Public Use
  Company Number: GB-HETERO CORPORATE-HET2019GB00454

PATIENT
  Age: 39 Year
  Sex: Female
  Weight: 91 kg

DRUGS (9)
  1. ZOLPIDEM [Concomitant]
     Active Substance: ZOLPIDEM\ZOLPIDEM TARTRATE
     Indication: PRODUCT USED FOR UNKNOWN INDICATION
     Route: 065
     Dates: start: 20181227, end: 20190108
  2. NAPROXEN. [Concomitant]
     Active Substance: NAPROXEN
     Indication: PRODUCT USED FOR UNKNOWN INDICATION
     Dosage: UNK
     Route: 065
     Dates: start: 20190129, end: 20190226
  3. BUPRENORPHINE. [Concomitant]
     Active Substance: BUPRENORPHINE
     Indication: PRODUCT USED FOR UNKNOWN INDICATION
     Dosage: UNK  (3 DOSAGE FORMS)
     Route: 065
     Dates: start: 20190129
  4. IBUPROFEN. [Concomitant]
     Active Substance: IBUPROFEN
     Indication: PRODUCT USED FOR UNKNOWN INDICATION
     Dosage: UNK UNK, QD  (3 DOSAGE FORMS)
     Route: 065
     Dates: start: 20190122, end: 20190130
  5. ARIPIPRAZOLE. [Suspect]
     Active Substance: ARIPIPRAZOLE
     Indication: PRODUCT USED FOR UNKNOWN INDICATION
     Dosage: 15 MG, QD
     Route: 065
     Dates: start: 20181227, end: 20190305
  6. GAVISCON                           /00237601/ [Concomitant]
     Active Substance: ALUMINUM HYDROXIDE\MAGNESIUM CARBONATE
     Indication: PRODUCT USED FOR UNKNOWN INDICATION
     Dosage: TAKE 2 TO 4 UP TO 4 TIMES/DAY; AS REQUIRED (AS NECESSARY)
     Route: 065
     Dates: start: 20181227, end: 20190103
  7. OLANZAPINE. [Concomitant]
     Active Substance: OLANZAPINE
     Indication: PRODUCT USED FOR UNKNOWN INDICATION
     Dosage: UNK UNK, QD 1 DOSAGE FORMS
     Route: 065
     Dates: start: 20190305
  8. LANSOPRAZOLE. [Concomitant]
     Active Substance: LANSOPRAZOLE
     Indication: PRODUCT USED FOR UNKNOWN INDICATION
     Dosage: UNK UNK, QD (1 DOSAGE FORMS)
     Route: 065
     Dates: start: 20190129, end: 20190226
  9. MACROGOL [Concomitant]
     Active Substance: POLYETHYLENE GLYCOLS
     Indication: CONSTIPATION
     Dosage: 1-2 DAILY; AS REQUIRED (AS NECESSARY)
     Route: 065
     Dates: start: 20190205, end: 20190225

REACTIONS (3)
  - Pain in extremity [Unknown]
  - Genitourinary symptom [Unknown]
  - Restless legs syndrome [Recovered/Resolved]
